FAERS Safety Report 9112646 (Version 2)
Quarter: 2013Q1

REPORT INFORMATION
  Report Type: Spontaneous
  Country: BR (occurrence: BR)
  Receive Date: 20130211
  Receipt Date: 20130226
  Transmission Date: 20140127
  Serious: Yes (Other)
  Sender: FDA-Public Use
  Company Number: PHHY2013BR012079

PATIENT
  Sex: Female
  Weight: 70 kg

DRUGS (3)
  1. FORASEQ [Suspect]
     Dosage: 1 DF, QD
     Dates: start: 2006
  2. FORASEQ [Suspect]
     Dosage: 1 DF, QD
     Dates: start: 20130206
  3. AMINOPHYLLINE [Concomitant]
     Indication: BRONCHITIS
     Dosage: UNK

REACTIONS (6)
  - Bronchitis [Recovering/Resolving]
  - Dyspnoea [Recovering/Resolving]
  - Chest pain [Recovering/Resolving]
  - Pain in extremity [Not Recovered/Not Resolved]
  - Swelling face [Not Recovered/Not Resolved]
  - Device malfunction [Unknown]
